FAERS Safety Report 8848746 (Version 2)
Quarter: 2012Q4

REPORT INFORMATION
  Report Type: Report from Study
  Country: US (occurrence: US)
  Receive Date: 20121018
  Receipt Date: 20121122
  Transmission Date: 20130627
  Serious: Yes (Hospitalization)
  Sender: FDA-Public Use
  Company Number: US-ROCHE-1146653

PATIENT
  Age: 57 Year
  Sex: Male
  Weight: 95 kg

DRUGS (7)
  1. PEG-INTERFERON ALFA 2A [Suspect]
     Indication: HEPATITIS C
     Route: 058
     Dates: start: 20120913
  2. RIBAVIRIN [Suspect]
     Indication: HEPATITIS C
     Route: 048
     Dates: start: 20120913
  3. RIBAVIRIN [Suspect]
     Route: 065
  4. VX-950 [Suspect]
     Indication: HEPATITIS C
     Route: 048
     Dates: start: 20120913
  5. ASA [Concomitant]
     Route: 065
     Dates: start: 20121011
  6. SALINE [Concomitant]
     Route: 065
     Dates: start: 20121011
  7. TYLENOL [Concomitant]
     Route: 065
     Dates: start: 20121011

REACTIONS (1)
  - Syncope [Recovered/Resolved]
